FAERS Safety Report 4673026-0 (Version None)
Quarter: 2005Q2

REPORT INFORMATION
  Report Type: 
  Country: None (occurrence: None)
  Receive Date: 20050524
  Receipt Date: 20050511
  Transmission Date: 20051028
  Serious: Yes (Other)
  Sender: FDA-Public Use
  Company Number: 2005059643

PATIENT
  Age: 22 Year
  Sex: Female
  Weight: 61.2356 kg

DRUGS (1)
  1. BEXTRA [Suspect]
     Indication: MUSCULOSKELETAL DISORDER
     Dosage: 40 M G (20 MG, 2 IN 1 D), ORAL
     Route: 048
     Dates: start: 20040501, end: 20040801

REACTIONS (11)
  - EYE SWELLING [None]
  - MUCOUS MEMBRANE DISORDER [None]
  - OEDEMA MOUTH [None]
  - OEDEMA PERIPHERAL [None]
  - RASH ERYTHEMATOUS [None]
  - RASH GENERALISED [None]
  - SWELLING [None]
  - SWELLING FACE [None]
  - ULCER [None]
  - URTICARIA GENERALISED [None]
  - VULVAL OEDEMA [None]
